FAERS Safety Report 4602037-6 (Version None)
Quarter: 2005Q2

REPORT INFORMATION
  Report Type: 
  Country: None (occurrence: None)
  Receive Date: 20050214
  Receipt Date: 20041104
  Transmission Date: 20051028
  Serious: Yes (Other)
  Sender: FDA-Public Use
  Company Number: 8008067

PATIENT
  Age: 43 Year
  Sex: Male
  Weight: 63.63 kg

DRUGS (5)
  1. KEPPRA [Suspect]
     Indication: CONVULSION
     Dosage: 250 MG 2/D PO
     Route: 048
     Dates: start: 20040801, end: 20040901
  2. KEPPRA [Suspect]
     Indication: CONVULSION
     Dosage: 500 MG 2/D PO
     Route: 048
     Dates: start: 20040901, end: 20041001
  3. KEPPRA [Suspect]
     Indication: CONVULSION
     Dosage: 750 MG 2/D PO
     Route: 048
     Dates: start: 20041001, end: 20041101
  4. KEPPRA [Suspect]
     Indication: CONVULSION
     Dosage: 500 MG 3/D PO
     Route: 048
     Dates: start: 20041101
  5. PHENOBARBITAL [Concomitant]

REACTIONS (2)
  - PELVIC FRACTURE [None]
  - URINARY INCONTINENCE [None]
